FAERS Safety Report 10365649 (Version 1)
Quarter: 2014Q3

REPORT INFORMATION
  Report Type: Spontaneous
  Country: US (occurrence: None)
  Receive Date: 20140804
  Receipt Date: 20140804
  Transmission Date: 20150326
  Serious: Yes (Disabling)
  Sender: FDA-Public Use
  Company Number: None

PATIENT
  Age: 7 Year
  Sex: Female
  Weight: 20 kg

DRUGS (1)
  1. MONTELUKAST 5 MG MONTELUKAST SODIUM [Suspect]
     Active Substance: MONTELUKAST SODIUM
     Indication: ASTHMA
     Dosage: 5 MG/DAY ONCE DAILY TAKEN BY MOUTH
     Route: 048

REACTIONS (3)
  - Head injury [None]
  - Intentional self-injury [None]
  - Abnormal behaviour [None]

NARRATIVE: CASE EVENT DATE: 20140731
